FAERS Safety Report 25400062 (Version 2)
Quarter: 2025Q3

REPORT INFORMATION
  Report Type: Spontaneous
  Country: EU (occurrence: EU)
  Receive Date: 20250605
  Receipt Date: 20250906
  Transmission Date: 20251021
  Serious: Yes (Hospitalization, Other)
  Sender: ALEXION PHARMACEUTICALS
  Company Number: EU-AstraZeneca-CH-00881223AM

PATIENT
  Age: 70 Year
  Sex: Female

DRUGS (8)
  1. FASENRA [Suspect]
     Active Substance: BENRALIZUMAB
     Indication: Product used for unknown indication
     Route: 065
  2. FASENRA [Suspect]
     Active Substance: BENRALIZUMAB
  3. DUPIXENT [Concomitant]
     Active Substance: DUPILUMAB
     Indication: Product used for unknown indication
     Route: 065
  4. NUCALA [Concomitant]
     Active Substance: MEPOLIZUMAB
     Indication: Product used for unknown indication
     Route: 065
  5. GABAPENTIN [Concomitant]
     Active Substance: GABAPENTIN
     Indication: Neuritis
     Route: 065
  6. PREDNISOLONE [Concomitant]
     Active Substance: PREDNISOLONE
     Indication: Asthma
     Route: 065
  7. BECLOMETHASONE DIPROPIONATE\FORMOTEROL FUMARATE\GLYCOPYRROLATE [Concomitant]
     Active Substance: BECLOMETHASONE DIPROPIONATE\FORMOTEROL FUMARATE\GLYCOPYRROLATE
     Indication: Product used for unknown indication
  8. ALBUTEROL [Concomitant]
     Active Substance: ALBUTEROL
     Indication: Product used for unknown indication
     Route: 065

REACTIONS (4)
  - Neuritis [Unknown]
  - Therapeutic product effect incomplete [Unknown]
  - Dyspnoea [Unknown]
  - Asthma [Unknown]
